FAERS Safety Report 8324513-5 (Version None)
Quarter: 2012Q2

REPORT INFORMATION
  Report Type: 
  Country: None (occurrence: None)
  Receive Date: 20120430
  Receipt Date: 20120430
  Transmission Date: 20120825
  Serious: Yes (Hospitalization)
  Sender: FDA-Public Use
  Company Number: None

PATIENT
  Sex: Female
  Weight: 53.5 kg

DRUGS (4)
  1. ATIVAN [Concomitant]
  2. FLUOROURACIL [Suspect]
     Dosage: 6.4 G
  3. XANAX [Concomitant]
  4. CISPLATIN [Suspect]
     Dosage: 127 MG

REACTIONS (4)
  - NAUSEA [None]
  - DEHYDRATION [None]
  - VOMITING [None]
  - FOOD INTOLERANCE [None]
